FAERS Safety Report 9339037 (Version 1)
Quarter: 2013Q2

REPORT INFORMATION
  Report Type: Spontaneous
  Country: US (occurrence: None)
  Receive Date: 20130531
  Receipt Date: 20130531
  Transmission Date: 20140414
  Serious: Yes (Hospitalization)
  Sender: FDA-Public Use
  Company Number: 2013036113

PATIENT
  Sex: Female
  Weight: 69.4 kg

DRUGS (5)
  1. ZEMAIRA [Suspect]
     Indication: ALPHA-1 ANTI-TRYPSIN DEFICIENCY
     Dosage: 90 MG/KG 1X/WEEK, 5.6 ML/MIN.
     Route: 042
  2. DIPHENHYDRAMINE [Concomitant]
  3. HEPARIN [Concomitant]
  4. SODIUM CHLORIDE [Concomitant]
  5. EPI-PEN [Concomitant]

REACTIONS (1)
  - Lung infection [None]
